FAERS Safety Report 6992459-0 (Version None)
Quarter: 2010Q3

REPORT INFORMATION
  Report Type: 
  Country: None (occurrence: None)
  Receive Date: 20100917
  Receipt Date: 20100820
  Transmission Date: 20110219
  Serious: Yes (Hospitalization, Other)
  Sender: FDA-Public Use
  Company Number: JP-PFIZER INC-2010077535

PATIENT
  Sex: Female
  Weight: 38 kg

DRUGS (6)
  1. CELECOX [Suspect]
     Indication: BACK PAIN
     Dosage: 100 MG, 2X/DAY
     Route: 048
     Dates: start: 20100519, end: 20100528
  2. CYTOTEC [Suspect]
     Indication: PROPHYLAXIS AGAINST GASTROINTESTINAL ULCER
     Dosage: 200 UG, 2X/DAY
     Route: 048
     Dates: start: 20100519, end: 20100528
  3. MYONAL [Suspect]
     Indication: BACK PAIN
     Dosage: 50 MG, 2X/DAY
     Route: 048
     Dates: start: 20100519, end: 20100528
  4. ERSIBON [Concomitant]
     Dosage: UNK
     Route: 048
     Dates: end: 20100528
  5. ETIDRONATE DISODIUM [Concomitant]
     Dosage: UNK
     Route: 048
     Dates: end: 20100528
  6. MERISLON [Concomitant]
     Dosage: UNK
     Route: 048
     Dates: end: 20100528

REACTIONS (1)
  - STEVENS-JOHNSON SYNDROME [None]
